FAERS Safety Report 5566745-5 (Version None)
Quarter: 2007Q4

REPORT INFORMATION
  Report Type: 
  Country: None (occurrence: None)
  Receive Date: 20071219
  Receipt Date: 20071210
  Transmission Date: 20080405
  Serious: Yes (Hospitalization)
  Sender: FDA-Public Use
  Company Number: US-ELI_LILLY_AND_COMPANY-US200712002032

PATIENT
  Sex: Female

DRUGS (7)
  1. CYMBALTA [Suspect]
     Indication: DEPRESSION
     Dosage: 60 MG, DAILY (1/D)
  2. ATIVAN [Concomitant]
  3. INDERAL [Concomitant]
  4. SYNTHROID [Concomitant]
  5. NEXIUM [Concomitant]
  6. IMITREX [Concomitant]
     Dosage: 100 MG, AS NEEDED
     Dates: end: 20070901
  7. IMITREX [Concomitant]
     Dosage: 100 MG, DAILY (1/D)
     Dates: start: 20070901

REACTIONS (1)
  - MIGRAINE [None]
